FAERS Safety Report 18463643 (Version 1)
Quarter: 2020Q4

REPORT INFORMATION
  Report Type: Spontaneous
  Country: US (occurrence: US)
  Receive Date: 20201104
  Receipt Date: 20201104
  Transmission Date: 20210114
  Serious: No
  Sender: FDA-Public Use
  Company Number: US-JNJFOC-20201049574

PATIENT
  Sex: Female

DRUGS (1)
  1. WOMENS ROGAINE UNSCENTED [Suspect]
     Active Substance: MINOXIDIL
     Indication: ALOPECIA
     Dosage: DOSE:NOT EVEN HALF A CAPFUL?LAST USED ON 26-OCT-2020
     Route: 061

REACTIONS (2)
  - Underdose [Unknown]
  - Application site discolouration [Not Recovered/Not Resolved]
